FAERS Safety Report 10156656 (Version 1)
Quarter: 2014Q2

REPORT INFORMATION
  Report Type: Spontaneous
  Country: FR (occurrence: FR)
  Receive Date: 20140507
  Receipt Date: 20140507
  Transmission Date: 20141212
  Serious: Yes (Other)
  Sender: FDA-Public Use
  Company Number: FR-RANBAXY-2014R1-80775

PATIENT
  Sex: 0

DRUGS (1)
  1. IBUPROFENE [Suspect]
     Indication: PROPHYLAXIS
     Route: 065

REACTIONS (2)
  - Hypoxia [Recovered/Resolved]
  - Pulmonary hypertension [Unknown]
